FAERS Safety Report 13259231 (Version 3)
Quarter: 2017Q1

REPORT INFORMATION
  Report Type: Spontaneous
  Country: JP (occurrence: JP)
  Receive Date: 20170222
  Receipt Date: 20170321
  Transmission Date: 20170428
  Serious: Yes (Death)
  Sender: FDA-Public Use
  Company Number: JP-009507513-1702JPN001158J

PATIENT
  Age: 78 Year
  Sex: Female
  Weight: 44 kg

DRUGS (21)
  1. FINIBAX [Concomitant]
     Active Substance: DORIPENEM MONOHYDRATE
     Indication: SEPSIS
     Dosage: 0.5 G, BID
     Route: 051
     Dates: start: 20160311, end: 20160318
  2. CEFXONE [Concomitant]
     Active Substance: CEFTRIAXONE
     Indication: SEPSIS
     Dosage: 1 G, QD
     Route: 051
     Dates: start: 20160321, end: 20160321
  3. ACELIO [Concomitant]
     Active Substance: ACETAMINOPHEN
     Indication: ANTIPYRESIS
     Dosage: 50 ML, QD
     Route: 051
     Dates: start: 20151203, end: 20160320
  4. L CARTIN [Concomitant]
     Active Substance: LEVOCARNITINE HYDROCHLORIDE
     Indication: CARNITINE DEFICIENCY
     Dosage: 5 ML, QD
     Route: 051
     Dates: start: 20151010, end: 20160320
  5. NOVOLIN R [Concomitant]
     Active Substance: INSULIN HUMAN
     Dosage: 1 DF, QD
     Route: 051
     Dates: start: 20160310, end: 20160310
  6. EXELON [Concomitant]
     Active Substance: RIVASTIGMINE TARTRATE
     Dosage: 4.5 MG, QD
     Route: 062
     Dates: start: 20160201, end: 20160321
  7. INOVAN [Concomitant]
     Active Substance: DOPAMINE HYDROCHLORIDE
     Indication: CIRCULATORY COLLAPSE
     Dosage: 50 ML, PRN
     Route: 051
     Dates: start: 20160109, end: 20160321
  8. TAZOPIPE [Concomitant]
     Active Substance: PIPERACILLIN SODIUM\TAZOBACTAM SODIUM
     Indication: SEPSIS
     Dosage: 4.5 G, TID
     Route: 051
     Dates: start: 20160301, end: 20160320
  9. CANCIDAS [Suspect]
     Active Substance: CASPOFUNGIN ACETATE
     Indication: SYSTEMIC CANDIDA
     Dosage: 70 MG, QD
     Route: 041
     Dates: start: 20151224, end: 20151224
  10. MEROPENEM. [Concomitant]
     Active Substance: MEROPENEM
     Indication: SEPSIS
     Dosage: 0.5 G, BID
     Route: 051
     Dates: start: 20151214, end: 20160310
  11. RANITIDINE. [Concomitant]
     Active Substance: RANITIDINE
     Indication: DUODENAL ULCER
     Dosage: 8 ML, QD
     Route: 051
     Dates: start: 20160224, end: 20160321
  12. NOVOLIN R [Concomitant]
     Active Substance: INSULIN HUMAN
     Indication: HYPERGLYCAEMIA
     Dosage: 0.3 ML, QD
     Route: 051
     Dates: start: 20151012, end: 20160321
  13. DICLOFENAC SODIUM. [Concomitant]
     Active Substance: DICLOFENAC SODIUM
     Indication: ANTIPYRESIS
     Dosage: 25 MG, QD
     Dates: start: 20151224, end: 20160309
  14. LASIX [Concomitant]
     Active Substance: FUROSEMIDE
     Indication: HYPERTENSION
     Dosage: 1 ML, QD
     Route: 051
     Dates: start: 20151226, end: 20160321
  15. VANCOMYCIN HYDROCHLORIDE. [Concomitant]
     Active Substance: VANCOMYCIN HYDROCHLORIDE
     Indication: SEPSIS
     Dosage: 0.5 G, BID
     Route: 051
     Dates: start: 20160109, end: 20160321
  16. FUNGUARD [Concomitant]
     Active Substance: MICAFUNGIN SODIUM
     Indication: SYSTEMIC CANDIDA
     Dosage: 100 MG, QD
     Route: 051
     Dates: start: 20160307, end: 20160310
  17. ELNEOPA NO.2 [Concomitant]
     Active Substance: AMINO ACIDS\CARBOHYDRATES\ELECTROLYTES NOS\VITAMINS
     Indication: EATING DISORDER
     Dosage: 1 L, QD
     Route: 051
     Dates: start: 20151020, end: 20160320
  18. EXELON [Concomitant]
     Active Substance: RIVASTIGMINE TARTRATE
     Indication: DEMENTIA ALZHEIMER^S TYPE
     Dosage: 18 MG, QD
     Route: 062
     Dates: start: 20150901, end: 20160105
  19. CANCIDAS [Suspect]
     Active Substance: CASPOFUNGIN ACETATE
     Indication: SYSTEMIC CANDIDA
     Dosage: 50 MG, QD
     Route: 041
     Dates: start: 20151225, end: 20160321
  20. PANTHENYL [Concomitant]
     Indication: ILEUS PARALYTIC
     Dosage: 100 MG, QD
     Route: 051
     Dates: start: 20151010, end: 20160321
  21. BFLUID [Concomitant]
     Active Substance: AMINO ACIDS\DEXTROSE\ELECTROLYTES NOS\VITAMINS
     Indication: EATING DISORDER
     Dosage: 500 ML, QD
     Route: 051
     Dates: start: 20151010, end: 20160320

REACTIONS (1)
  - Bacterial infection [Fatal]

NARRATIVE: CASE EVENT DATE: 20160321
